FAERS Safety Report 18192723 (Version 2)
Quarter: 2020Q3

REPORT INFORMATION
  Report Type: Spontaneous
  Country: US (occurrence: US)
  Receive Date: 20200825
  Receipt Date: 20200831
  Transmission Date: 20201103
  Serious: Yes (Hospitalization, Other)
  Sender: FDA-Public Use
  Company Number: US-VELOXIS PHARMACEUTICALS-2020VELUS-000746

PATIENT
  Age: 67 Year
  Sex: Male

DRUGS (7)
  1. ENVARSUS XR [Suspect]
     Active Substance: TACROLIMUS
     Indication: IMMUNOSUPPRESSANT DRUG THERAPY
  2. PREDNISONE. [Suspect]
     Active Substance: PREDNISONE
     Indication: PROPHYLAXIS AGAINST TRANSPLANT REJECTION
     Dosage: 30 MILLIGRAM, BID
     Route: 048
  3. PREDNISONE. [Suspect]
     Active Substance: PREDNISONE
     Indication: IMMUNOSUPPRESSANT DRUG THERAPY
  4. CICLOSPORIN [Suspect]
     Active Substance: CYCLOSPORINE
     Indication: IMMUNOSUPPRESSANT DRUG THERAPY
     Dosage: UNK
  5. ENVARSUS XR [Suspect]
     Active Substance: TACROLIMUS
     Indication: PROPHYLAXIS AGAINST TRANSPLANT REJECTION
     Dosage: UNK
  6. APIXABAN [Concomitant]
     Active Substance: APIXABAN
     Indication: ATRIAL FIBRILLATION
     Dosage: UNK
  7. EVEROLIMUS. [Suspect]
     Active Substance: EVEROLIMUS
     Indication: IMMUNOSUPPRESSANT DRUG THERAPY
     Dosage: 1 MILLIGRAM, BID
     Route: 048

REACTIONS (16)
  - Prophylaxis against transplant rejection [Unknown]
  - Pulmonary embolism [Recovering/Resolving]
  - Vasodilatation [Unknown]
  - Skin necrosis [Recovering/Resolving]
  - Thrombocytopenia [Recovering/Resolving]
  - Cytomegalovirus infection [Unknown]
  - Vascular injury [Recovering/Resolving]
  - Thrombotic microangiopathy [Recovering/Resolving]
  - Normocytic anaemia [Recovering/Resolving]
  - Thrombosis [Recovering/Resolving]
  - Acute kidney injury [Unknown]
  - Ecchymosis [Recovering/Resolving]
  - Condition aggravated [Recovering/Resolving]
  - Pneumonia pseudomonal [Unknown]
  - Peripheral artery stenosis [Unknown]
  - Respiratory failure [Unknown]
